FAERS Safety Report 24709913 (Version 1)
Quarter: 2024Q4

REPORT INFORMATION
  Report Type: Spontaneous
  Country: JP (occurrence: JP)
  Receive Date: 20241209
  Receipt Date: 20241209
  Transmission Date: 20250114
  Serious: Yes (Other)
  Sender: JOHNSON AND JOHNSON
  Company Number: JP-JNJFOC-20241026560

PATIENT
  Age: 68 Year
  Sex: Female

DRUGS (3)
  1. SELEXIPAG [Suspect]
     Active Substance: SELEXIPAG
     Indication: Pulmonary arterial hypertension
     Route: 048
  2. SELEXIPAG [Suspect]
     Active Substance: SELEXIPAG
     Route: 048
  3. SELEXIPAG [Suspect]
     Active Substance: SELEXIPAG
     Route: 048

REACTIONS (4)
  - Hypoxia [Not Recovered/Not Resolved]
  - Tachycardia [Not Recovered/Not Resolved]
  - Blood pressure systolic decreased [Recovered/Resolved]
  - Blood pressure systolic increased [Not Recovered/Not Resolved]

NARRATIVE: CASE EVENT DATE: 20240101
